FAERS Safety Report 16172573 (Version 1)
Quarter: 2019Q2

REPORT INFORMATION
  Report Type: Report from Study
  Country: None (occurrence: NL)
  Receive Date: 20190409
  Receipt Date: 20190409
  Transmission Date: 20190711
  Serious: Yes (Other)
  Sender: FDA-Public Use
  Company Number: NL-ABBVIE-19S-114-2700921-00

PATIENT
  Sex: Female
  Weight: 14.85 kg

DRUGS (16)
  1. SYNAGIS [Suspect]
     Active Substance: PALIVIZUMAB
     Indication: CONGENITAL MYOPATHY
     Route: 050
     Dates: start: 20180907, end: 20180907
  2. SYNAGIS [Suspect]
     Active Substance: PALIVIZUMAB
     Route: 050
     Dates: start: 20181011, end: 20181011
  3. SYNAGIS [Suspect]
     Active Substance: PALIVIZUMAB
     Route: 050
  4. SYNAGIS [Suspect]
     Active Substance: PALIVIZUMAB
     Route: 050
     Dates: start: 20190301, end: 20190301
  5. SYNAGIS [Suspect]
     Active Substance: PALIVIZUMAB
     Route: 050
  6. SYNAGIS [Suspect]
     Active Substance: PALIVIZUMAB
     Route: 050
  7. SYNAGIS [Suspect]
     Active Substance: PALIVIZUMAB
     Route: 050
     Dates: start: 20190104, end: 20190104
  8. SYNAGIS [Suspect]
     Active Substance: PALIVIZUMAB
     Indication: MUSCULAR WEAKNESS
     Route: 050
     Dates: start: 20170919, end: 20180404
  9. SYNAGIS [Suspect]
     Active Substance: PALIVIZUMAB
     Route: 050
  10. SYNAGIS [Suspect]
     Active Substance: PALIVIZUMAB
     Route: 050
     Dates: start: 20181109, end: 20181109
  11. SYNAGIS [Suspect]
     Active Substance: PALIVIZUMAB
     Route: 050
  12. SYNAGIS [Suspect]
     Active Substance: PALIVIZUMAB
     Route: 050
     Dates: start: 20181210, end: 20181210
  13. SYNAGIS [Suspect]
     Active Substance: PALIVIZUMAB
     Indication: RESPIRATORY TRACT INFECTION
     Route: 050
     Dates: start: 20170118, end: 20170412
  14. SYNAGIS [Suspect]
     Active Substance: PALIVIZUMAB
     Route: 050
  15. SYNAGIS [Suspect]
     Active Substance: PALIVIZUMAB
     Route: 050
     Dates: start: 20190201, end: 20190201
  16. SYNAGIS [Suspect]
     Active Substance: PALIVIZUMAB
     Route: 050

REACTIONS (4)
  - Gastroenteritis viral [Recovered/Resolved]
  - Growth retardation [Not Recovered/Not Resolved]
  - Gastrostomy [Unknown]
  - Weight decreased [Not Recovered/Not Resolved]
